FAERS Safety Report 7889343-7 (Version None)
Quarter: 2011Q4

REPORT INFORMATION
  Report Type: 
  Country: None (occurrence: None)
  Receive Date: 20111103
  Receipt Date: 20100813
  Transmission Date: 20120403
  Serious: No
  Sender: FDA-Public Use
  Company Number: US-BAYER-201030571NA

PATIENT
  Sex: Female

DRUGS (5)
  1. LEVAQUIN [Concomitant]
  2. BRONCHODILATORS [Concomitant]
  3. IBUPROFEN [Concomitant]
  4. AVELOX [Suspect]
     Indication: INFECTION
     Dosage: 400 MG, UNK
     Route: 048
     Dates: start: 20050101
  5. ASPIRIN [Concomitant]

REACTIONS (1)
  - PAIN IN EXTREMITY [None]
